FAERS Safety Report 9990869 (Version 1)
Quarter: 2014Q1

REPORT INFORMATION
  Report Type: Report from Study
  Country: US (occurrence: US)
  Receive Date: 20140310
  Receipt Date: 20140310
  Transmission Date: 20141002
  Serious: No
  Sender: FDA-Public Use
  Company Number: US-ABBVIE-13P-163-1133290-00

PATIENT
  Age: 59 Year
  Sex: Female

DRUGS (4)
  1. HUMIRA [Suspect]
     Indication: PSORIASIS
     Dates: start: 201303
  2. FEMARA [Concomitant]
     Indication: BREAST CANCER
     Dosage: ESTROGEN SUPRESSANT
  3. BLOOD PRESSURE MEDICATION [Concomitant]
     Indication: BLOOD PRESSURE
  4. METFORMIN COMBO MEDICATION [Concomitant]
     Indication: DIABETES MELLITUS

REACTIONS (4)
  - Photosensitivity reaction [Not Recovered/Not Resolved]
  - Erythema [Not Recovered/Not Resolved]
  - Psoriasis [Not Recovered/Not Resolved]
  - Miliaria [Not Recovered/Not Resolved]
